FAERS Safety Report 5796030-8 (Version None)
Quarter: 2008Q2

REPORT INFORMATION
  Report Type: 
  Country: None (occurrence: None)
  Receive Date: 20080626
  Receipt Date: 20080613
  Transmission Date: 20081010
  Serious: Yes (Hospitalization)
  Sender: FDA-Public Use
  Company Number: CIO080-10683

PATIENT
  Age: 2 Month
  Sex: Female

DRUGS (1)
  1. METAMUCIL-2 [Suspect]
     Indication: UMBILICAL HERNIA
     Dosage: 1 TSP, 1 /DAY FOR 5 DAYS, ORAL
     Route: 048
     Dates: start: 20080607, end: 20080611

REACTIONS (2)
  - CHOKING [None]
  - RETCHING [None]
